FAERS Safety Report 10063776 (Version 2)
Quarter: 2014Q2

REPORT INFORMATION
  Report Type: Report from Study
  Country: US (occurrence: US)
  Receive Date: 20140408
  Receipt Date: 20140510
  Transmission Date: 20141212
  Serious: Yes (Hospitalization, Other)
  Sender: FDA-Public Use
  Company Number: US-JNJFOC-20140318387

PATIENT
  Age: 24 Year
  Sex: Female
  Weight: 77.1 kg

DRUGS (3)
  1. APAP [Suspect]
     Route: 048
  2. APAP [Suspect]
     Indication: PRODUCT USED FOR UNKNOWN INDICATION
     Route: 048
  3. DIPHENHYDRAMINE [Concomitant]
     Indication: PRODUCT USED FOR UNKNOWN INDICATION
     Route: 065

REACTIONS (4)
  - Intentional self-injury [Recovered/Resolved]
  - Overdose [Recovered/Resolved]
  - Vomiting [Recovered/Resolved]
  - Transaminases increased [Recovered/Resolved]
